FAERS Safety Report 7653819-8 (Version None)
Quarter: 2011Q3

REPORT INFORMATION
  Report Type: 
  Country: None (occurrence: None)
  Receive Date: 20110728
  Receipt Date: 20100324
  Transmission Date: 20111222
  Serious: Yes (Other)
  Sender: FDA-Public Use
  Company Number: 2010SP018636

PATIENT
  Age: 18 Month
  Sex: Female

DRUGS (2)
  1. INTRON A [Suspect]
     Indication: HEPATITIS B
     Dosage: 0.33 MIU
     Dates: start: 20090810
  2. INTRON A [Suspect]
     Indication: HEPATITIS B
     Dosage: 0.33 MIU
     Dates: start: 20090801

REACTIONS (2)
  - MALAISE [None]
  - ALANINE AMINOTRANSFERASE INCREASED [None]
